FAERS Safety Report 9360008 (Version 5)
Quarter: 2013Q4

REPORT INFORMATION
  Report Type: Report from Study
  Country: AU (occurrence: AU)
  Receive Date: 20130621
  Receipt Date: 20131212
  Transmission Date: 20140711
  Serious: Yes (Hospitalization, Other)
  Sender: FDA-Public Use
  Company Number: PHHY2013AU063286

PATIENT
  Age: 82 Year
  Sex: Female

DRUGS (15)
  1. ACLASTA [Suspect]
     Dosage: 5 MG
     Route: 042
     Dates: start: 20110504
  2. ACLASTA [Suspect]
     Dosage: 5 MG
     Route: 042
     Dates: start: 20120528
  3. KARVEZIDE [Concomitant]
     Indication: HYPERTENSION
     Dosage: 150/ 12.5 ONCE A DAY (UNIT UNSPECIFIED)
  4. PANADOL [Concomitant]
     Indication: OSTEOARTHRITIS
     Dosage: 665 SIX PER WEEK
  5. ENOXAPARIN [Concomitant]
     Dosage: 40 MG, QD
     Route: 058
  6. NALOXONE [Concomitant]
     Indication: PAIN
     Dosage: 2 DF, UNK
  7. OXYCODONE [Concomitant]
     Dosage: 5-10 MG EVERY 2 HOURS
  8. PREGABALIN [Concomitant]
     Indication: PAIN
     Dosage: 2 DF, BID
  9. IRBESARTAN [Concomitant]
     Indication: HYPERTENSION
     Dosage: 12.5 MG, QD
  10. PARACETAMOL [Concomitant]
     Indication: PAIN
     Dosage: 500 MG, QID
  11. TRAMADOL [Concomitant]
     Indication: PAIN
     Dosage: 1 DF, BID
  12. DOCUSATE [Concomitant]
     Indication: CONSTIPATION
     Dosage: 2 DF, BID
  13. LACTULOSE [Concomitant]
     Indication: CONSTIPATION
     Dosage: 20 ML, QD
  14. MOVICOL [Concomitant]
     Indication: CONSTIPATION
     Dosage: 1 DF, QD
  15. CHOLECALCIFEROL [Concomitant]
     Dosage: 1 DF, QD

REACTIONS (10)
  - Femoral neck fracture [Recovered/Resolved with Sequelae]
  - Fracture displacement [Unknown]
  - Fall [Recovered/Resolved with Sequelae]
  - Wound infection staphylococcal [Recovering/Resolving]
  - Pleural effusion [Unknown]
  - Lower respiratory tract infection [Recovering/Resolving]
  - Anaemia [Recovering/Resolving]
  - Osteoarthritis [Unknown]
  - Glomerular filtration rate decreased [Unknown]
  - Lethargy [Unknown]
